FAERS Safety Report 8622917-4 (Version None)
Quarter: 2012Q3

REPORT INFORMATION
  Report Type: 
  Country: None (occurrence: None)
  Receive Date: 20120827
  Receipt Date: 20120813
  Transmission Date: 20120928
  Serious: No
  Sender: FDA-Public Use
  Company Number: US-JNJFOC-20120807494

PATIENT
  Sex: Female
  Weight: 74.39 kg

DRUGS (4)
  1. FENTANYL-100 [Suspect]
     Indication: PAIN
     Route: 062
     Dates: start: 20120810
  2. LASIX [Concomitant]
     Indication: FLUID RETENTION
     Route: 048
     Dates: start: 20020101
  3. PLAVIX [Concomitant]
     Indication: CARDIOVASCULAR DISORDER
     Route: 048
     Dates: start: 20120501
  4. ATENOLOL [Concomitant]
     Indication: PALPITATIONS
     Route: 048

REACTIONS (1)
  - DRUG ADMINISTERED AT INAPPROPRIATE SITE [None]
